FAERS Safety Report 10594052 (Version 1)
Quarter: 2014Q4

REPORT INFORMATION
  Report Type: Report from Study
  Country: ES (occurrence: ES)
  Receive Date: 20141119
  Receipt Date: 20141119
  Transmission Date: 20150529
  Serious: Yes (Other)
  Sender: FDA-Public Use
  Company Number: ES-GLAXOSMITHKLINE-ES2014GSK018196

PATIENT

DRUGS (4)
  1. DABRAFENIB [Suspect]
     Active Substance: DABRAFENIB
     Dosage: 150 MG, BID
     Route: 065
  2. DABRAFENIB [Suspect]
     Active Substance: DABRAFENIB
     Indication: NEUROENDOCRINE TUMOUR
     Dosage: 50 MG, BID
     Route: 065
  3. PAZOPANIB [Suspect]
     Active Substance: PAZOPANIB
     Dosage: 800 MG, QD
  4. PAZOPANIB [Suspect]
     Active Substance: PAZOPANIB
     Indication: NEUROENDOCRINE TUMOUR
     Dosage: 400 MG, QD
     Route: 065

REACTIONS (1)
  - Intestinal perforation [Unknown]
